FAERS Safety Report 8600655-1 (Version None)
Quarter: 2012Q3

REPORT INFORMATION
  Report Type: 
  Country: None (occurrence: None)
  Receive Date: 20120817
  Receipt Date: 20120807
  Transmission Date: 20120928
  Serious: Yes (Hospitalization)
  Sender: FDA-Public Use
  Company Number: US-BAYER-2012-032574

PATIENT
  Age: 45 Year
  Sex: Female
  Weight: 53.515 kg

DRUGS (2)
  1. AZITHROMYCIN [Concomitant]
     Dosage: 250 MG, OM
  2. YAZ [Suspect]
     Indication: CONTRACEPTION
     Dosage: UNK
     Dates: start: 20071018, end: 20100317

REACTIONS (7)
  - INJURY [None]
  - PAIN [None]
  - PLEURITIC PAIN [None]
  - ANXIETY [None]
  - DYSPNOEA [None]
  - PULMONARY EMBOLISM [None]
  - ANHEDONIA [None]
